FAERS Safety Report 22103101 (Version 2)
Quarter: 2023Q1

REPORT INFORMATION
  Report Type: Spontaneous
  Country: US (occurrence: US)
  Receive Date: 20230316
  Receipt Date: 20230317
  Transmission Date: 20230418
  Serious: Yes (Hospitalization, Other)
  Sender: FDA-Public Use
  Company Number: US-PFIZER INC-PV202200084631

PATIENT
  Age: 78 Year
  Sex: Female
  Weight: 61.23 kg

DRUGS (2)
  1. XELJANZ XR [Suspect]
     Active Substance: TOFACITINIB CITRATE
     Indication: Rheumatoid arthritis
     Dosage: 11 MG, 1X/DAY
     Route: 048
     Dates: end: 20230113
  2. CAPECITABINE [Concomitant]
     Active Substance: CAPECITABINE
     Dosage: 2000 MG, CYCLIC (TWICE A DAY, INTERVALS OF 14 DAYS ON THEN 7 DAYS OFF)
     Dates: start: 20230218

REACTIONS (5)
  - Rectal neoplasm [Unknown]
  - Cancer surgery [Unknown]
  - Intentional dose omission [Unknown]
  - Musculoskeletal stiffness [Not Recovered/Not Resolved]
  - Pain [Unknown]

NARRATIVE: CASE EVENT DATE: 20220801
